FAERS Safety Report 4371240-5 (Version None)
Quarter: 2004Q2

REPORT INFORMATION
  Report Type: 
  Country: None (occurrence: None)
  Receive Date: 20040603
  Receipt Date: 20040517
  Transmission Date: 20050107
  Serious: Yes (Hospitalization)
  Sender: FDA-Public Use
  Company Number: JP-JNJFOC-20040503808

PATIENT
  Age: 45 Year
  Sex: Male
  Weight: 67 kg

DRUGS (4)
  1. REMICADE [Suspect]
     Indication: RHEUMATOID ARTHRITIS
     Dosage: 3 MG/KG, 1 IN 1 AS  NECESSARY, INTRAVENOUS DRIP
     Route: 041
     Dates: start: 20040224, end: 20040224
  2. METHOTREXATE [Concomitant]
  3. ... [Concomitant]
  4. ... [Concomitant]

REACTIONS (6)
  - ERYTHEMA [None]
  - HEPATIC FUNCTION ABNORMAL [None]
  - PLEURAL EFFUSION [None]
  - PNEUMONIA [None]
  - PYREXIA [None]
  - TUBERCULOUS PLEURISY [None]
